FAERS Safety Report 4355499-6 (Version None)
Quarter: 2004Q2

REPORT INFORMATION
  Report Type: 
  Country: None (occurrence: None)
  Receive Date: 20040505
  Receipt Date: 20040427
  Transmission Date: 20050107
  Serious: Yes (Hospitalization)
  Sender: FDA-Public Use
  Company Number: 2004028725

PATIENT
  Age: 11 Year
  Sex: Female

DRUGS (2)
  1. UNASYN [Suspect]
     Indication: CYSTITIS
     Dosage: 2 GRAM (2 GRAM, 1 IN 1 D), INTRAMUSCULAR
     Route: 030
     Dates: start: 20040413, end: 20040416
  2. ACETAMINOPHEN [Concomitant]

REACTIONS (6)
  - ASTHENIA [None]
  - BACK PAIN [None]
  - CYSTITIS NONINFECTIVE [None]
  - NEPHRITIS [None]
  - PELVIC INFLAMMATORY DISEASE [None]
  - VOMITING [None]
